FAERS Safety Report 6924237-2 (Version None)
Quarter: 2010Q3

REPORT INFORMATION
  Report Type: 
  Country: None (occurrence: None)
  Receive Date: 20100811
  Receipt Date: 20100811
  Transmission Date: 20110219
  Serious: No
  Sender: FDA-Public Use
  Company Number: None

PATIENT
  Sex: Female
  Weight: 66.6788 kg

DRUGS (4)
  1. BACTRIM DS [Suspect]
     Indication: URINARY TRACT INFECTION
     Dosage: 1 TABLET 2 TIMES A DAY ORAL
     Route: 048
     Dates: start: 20080716, end: 20080718
  2. FLUOXETINE [Concomitant]
  3. ADDERALL 10 [Concomitant]
  4. SYNTHROID [Concomitant]

REACTIONS (1)
  - FEELING ABNORMAL [None]
